FAERS Safety Report 11619215 (Version 1)
Quarter: 2015Q4

REPORT INFORMATION
  Report Type: Spontaneous
  Country: IT (occurrence: IT)
  Receive Date: 20151012
  Receipt Date: 20151012
  Transmission Date: 20160304
  Serious: Yes (Death)
  Sender: FDA-Public Use
  Company Number: IT-JNJFOC-20151004466

PATIENT
  Age: 68 Year
  Sex: Male
  Weight: 60 kg

DRUGS (4)
  1. NORMIX [Concomitant]
     Active Substance: RIFAXIMIN
     Indication: ENCEPHALOPATHY
     Route: 048
  2. SOVALDI [Suspect]
     Active Substance: SOFOSBUVIR
     Indication: PRODUCT USED FOR UNKNOWN INDICATION
     Route: 048
     Dates: start: 20150401, end: 20150613
  3. OLYSIO [Suspect]
     Active Substance: SIMEPREVIR
     Indication: HEPATIC CIRRHOSIS
     Route: 048
     Dates: start: 20150401, end: 20150613
  4. LASIX [Concomitant]
     Active Substance: FUROSEMIDE
     Indication: ASCITES
     Route: 048

REACTIONS (4)
  - Jaundice [Fatal]
  - Microlithiasis [Fatal]
  - Hyperbilirubinaemia [Fatal]
  - Vomiting [Unknown]

NARRATIVE: CASE EVENT DATE: 20150610
